FAERS Safety Report 15391931 (Version 3)
Quarter: 2018Q4

REPORT INFORMATION
  Report Type: Spontaneous
  Country: US (occurrence: US)
  Receive Date: 20180917
  Receipt Date: 20181026
  Transmission Date: 20190204
  Serious: Yes (Other)
  Sender: FDA-Public Use
  Company Number: US-PFIZER INC-2018369169

PATIENT
  Age: 59 Year
  Sex: Male
  Weight: 68.4 kg

DRUGS (4)
  1. ALPRAZOLAM. [Suspect]
     Active Substance: ALPRAZOLAM
     Indication: NERVOUSNESS
     Dosage: 1 MG, 3X/DAY
     Route: 048
     Dates: start: 201510
  2. ALPRAZOLAM. [Suspect]
     Active Substance: ALPRAZOLAM
     Indication: ANXIETY
     Dosage: 0.5 MG, 3X/DAY
     Route: 048
     Dates: start: 201508
  3. ALPRAZOLAM. [Suspect]
     Active Substance: ALPRAZOLAM
     Indication: TENSION
     Dosage: 0.5 MG, 4X/DAY
     Route: 048
     Dates: start: 20160602
  4. ALPRAZOLAM. [Suspect]
     Active Substance: ALPRAZOLAM
     Indication: STRESS
     Dosage: 1 MG, 3X/DAY
     Route: 048
     Dates: start: 20180808, end: 20181015

REACTIONS (14)
  - Drug effect decreased [Unknown]
  - Drug ineffective [Unknown]
  - Insomnia [Unknown]
  - Drug dependence [Unknown]
  - Drug tolerance [Unknown]
  - Dizziness [Unknown]
  - Anxiety [Unknown]
  - Drug resistance [Unknown]
  - Panic attack [Unknown]
  - Intentional product misuse [Unknown]
  - Condition aggravated [Unknown]
  - Irritability [Unknown]
  - Weight decreased [Unknown]
  - Ligament sprain [Unknown]

NARRATIVE: CASE EVENT DATE: 20181003
